FAERS Safety Report 16426637 (Version 1)
Quarter: 2019Q3

REPORT INFORMATION
  Report Type: Spontaneous
  Country: US (occurrence: US)
  Receive Date: 20190612
  Receipt Date: 20190612
  Transmission Date: 20191004
  Serious: Yes (Other)
  Sender: FDA-Public Use
  Company Number: None

PATIENT
  Age: 68 Year
  Sex: Female
  Weight: 76.5 kg

DRUGS (9)
  1. ATORVASTATIN [Suspect]
     Active Substance: ATORVASTATIN
     Indication: DIABETES MELLITUS
     Route: 048
     Dates: start: 20170320, end: 20190514
  2. GLIPIZIDE. [Concomitant]
     Active Substance: GLIPIZIDE
     Dates: start: 20161020
  3. MULTIVITAMIN [Concomitant]
     Active Substance: VITAMINS
     Dates: start: 20160126
  4. CYCLOBENZAPRINE. [Concomitant]
     Active Substance: CYCLOBENZAPRINE
     Dates: start: 20160815
  5. ATORVASTATIN [Suspect]
     Active Substance: ATORVASTATIN
     Indication: HYPERLIPIDAEMIA
     Route: 048
     Dates: start: 20170320, end: 20190514
  6. METFORMIN [Concomitant]
     Active Substance: METFORMIN HYDROCHLORIDE
     Dates: start: 20161001
  7. LISINOPRIL. [Concomitant]
     Active Substance: LISINOPRIL
     Dates: start: 20160908
  8. NAPROXEN. [Concomitant]
     Active Substance: NAPROXEN
     Dates: start: 20160617
  9. LORATADINE. [Concomitant]
     Active Substance: LORATADINE
     Dates: start: 20150924

REACTIONS (5)
  - Myopathy [None]
  - Blood creatine phosphokinase increased [None]
  - Adverse drug reaction [None]
  - Autoimmune disorder [None]
  - Antibody test positive [None]

NARRATIVE: CASE EVENT DATE: 20190514
